FAERS Safety Report 13312454 (Version 1)
Quarter: 2017Q1

REPORT INFORMATION
  Report Type: Spontaneous
  Country: US (occurrence: US)
  Receive Date: 20170309
  Receipt Date: 20170309
  Transmission Date: 20170428
  Serious: No
  Sender: FDA-Public Use
  Company Number: US-009507513-1702USA003653

PATIENT

DRUGS (2)
  1. RECOMBIVAX HB [Suspect]
     Active Substance: HEPATITIS B VIRUS SUBTYPE ADW HBSAG SURFACE PROTEIN ANTIGEN
     Indication: PROPHYLAXIS
  2. STERILE DILUENT [Suspect]
     Active Substance: WATER
     Indication: PROPHYLAXIS

REACTIONS (2)
  - Incorrect product storage [Unknown]
  - No adverse event [Unknown]
